FAERS Safety Report 5860102-X (Version None)
Quarter: 2008Q3

REPORT INFORMATION
  Report Type: 
  Country: None (occurrence: None)
  Receive Date: 20080827
  Receipt Date: 20080815
  Transmission Date: 20090109
  Serious: Yes (Death, Hospitalization)
  Sender: FDA-Public Use
  Company Number: SE-ELI_LILLY_AND_COMPANY-SE200808002997

PATIENT
  Sex: Male

DRUGS (18)
  1. GEMZAR [Suspect]
     Indication: NEOPLASM MALIGNANT
     Dosage: 1 D/F, UNKNOWN
     Route: 065
     Dates: start: 20080513, end: 20080520
  2. CARBOPLATIN [Concomitant]
     Dosage: 1 D/F, UNKNOWN
     Route: 065
     Dates: start: 20080513, end: 20080513
  3. SPIRIVA [Concomitant]
     Dosage: UNK, UNKNOWN
     Route: 065
  4. OXYCONTIN [Concomitant]
     Dosage: UNK, UNKNOWN
     Route: 065
  5. ACETYLCYSTEINE [Concomitant]
     Dosage: UNK, UNKNOWN
     Route: 065
  6. OMEPRAZOLE [Concomitant]
     Dosage: UNK, UNKNOWN
     Route: 065
  7. SERETIDE DISKUS [Concomitant]
     Dosage: UNK, UNKNOWN
     Route: 065
  8. FUROSEMIDE [Concomitant]
     Dosage: 40 MG, UNKNOWN
     Route: 065
  9. APRESOLINE [Concomitant]
     Dosage: 25 MG, UNKNOWN
     Route: 065
  10. BETAPRED [Concomitant]
     Dosage: 0.5 MG, UNKNOWN
     Route: 065
  11. SIMVASTATIN [Concomitant]
     Dosage: 20 MG, UNKNOWN
     Route: 065
  12. ALVEDON [Concomitant]
     Dosage: 1 G, UNKNOWN
     Route: 065
  13. OXASCAND [Concomitant]
     Dosage: UNK, UNKNOWN
     Route: 065
  14. VENTOLIN [Concomitant]
     Dosage: UNK, UNKNOWN
     Route: 065
  15. ASPIRIN [Concomitant]
     Dosage: 75 MG, UNKNOWN
     Route: 065
  16. CALCICHEW D3 [Concomitant]
     Dosage: UNK, UNKNOWN
     Route: 065
  17. ATACAND [Concomitant]
     Dosage: 8 MG, UNKNOWN
     Route: 065
  18. NOVOLOG MIX 70/30 [Concomitant]
     Dosage: UNK, UNKNOWN
     Route: 065

REACTIONS (2)
  - NEUTROPENIC SEPSIS [None]
  - PYREXIA [None]
